FAERS Safety Report 9245618 (Version 1)
Quarter: 2013Q1

REPORT INFORMATION
  Report Type: Spontaneous
  Country: US (occurrence: None)
  Receive Date: 20121130
  Receipt Date: 20121130
  Transmission Date: 20140127
  Serious: Yes (Hospitalization, Other)
  Sender: FDA-Public Use
  Company Number: 352832

PATIENT
  Age: 69 Year
  Sex: Male
  Weight: 69.8 kg

DRUGS (4)
  1. NOVOLOG [Suspect]
     Indication: TYPE 1 DIABETES MELLITUS
     Route: 058
     Dates: start: 20120216
  2. PANTOPRAZOLE (PANTOPRAZOLE) [Concomitant]
  3. ALENDRONATE SODIUM (ALENDRONATE SODIUM) [Concomitant]
  4. PANCREASE /00014701/ (PANCREATIN) [Concomitant]

REACTIONS (3)
  - Device malfunction [None]
  - Blood glucose increased [None]
  - Hypoglycaemia [None]
